FAERS Safety Report 5283580-6 (Version None)
Quarter: 2007Q2

REPORT INFORMATION
  Report Type: 
  Country: None (occurrence: None)
  Receive Date: 20070402
  Receipt Date: 20070320
  Transmission Date: 20071010
  Serious: Yes (Other)
  Sender: FDA-Public Use
  Company Number: MX-ROCHE-488603

PATIENT
  Age: 73 Year
  Sex: Male
  Weight: 83 kg

DRUGS (4)
  1. PEGASYS [Suspect]
     Indication: HEPATITIS C
     Route: 065
  2. CIPROFLOXACIN HCL [Suspect]
     Indication: URINARY TRACT INFECTION
     Route: 042
     Dates: start: 20060806, end: 20060815
  3. 1 CONCOMITANT DRUG [Concomitant]
     Indication: URINARY TRACT INFECTION
     Dosage: DRUG REPORTED AS METILPREDNIZOLONE.
     Route: 042
     Dates: start: 20060806, end: 20060806
  4. 1 CONCOMITANT DRUG [Concomitant]
     Dosage: DRUG REPORTED AS DIFENHIDRAMINE.
     Dates: start: 20060806, end: 20060806

REACTIONS (6)
  - DIARRHOEA [None]
  - GASTROINTESTINAL HAEMORRHAGE [None]
  - HAEMATEMESIS [None]
  - HEADACHE [None]
  - URINARY TRACT INFECTION [None]
  - VOMITING [None]
